FAERS Safety Report 6347570-4 (Version None)
Quarter: 2009Q3

REPORT INFORMATION
  Report Type: 
  Country: None (occurrence: None)
  Receive Date: 20090909
  Receipt Date: 20090909
  Transmission Date: 20100115
  Serious: No
  Sender: FDA-Public Use
  Company Number: None

PATIENT
  Sex: Female
  Weight: 90.7194 kg

DRUGS (2)
  1. SIPHOTROL PLUSS II [Suspect]
     Indication: FLEA INFESTATION
     Dosage: 1 CAN EACH -- SIPHOTROL CAN STATES IT TREATES UP TO 2,000 SQ.FT. (MY HOME IS 2,700 SQ. FT.)
     Dates: start: 20090820, end: 20090827
  2. RID SPRAY [Suspect]
     Indication: LICE INFESTATION
     Dosage: 1 CAN EACH -- SIPHOTROL CAN STATES IT TREATS UP TO 2,000 SP. FT. (MY HOME IS 2,700 SQ. FT.).
     Dates: start: 20090820, end: 20090827

REACTIONS (2)
  - HEADACHE [None]
  - UPPER RESPIRATORY TRACT INFECTION [None]
